FAERS Safety Report 19370700 (Version 1)
Quarter: 2021Q2

REPORT INFORMATION
  Report Type: Report from Study
  Country: ES (occurrence: ES)
  Receive Date: 20210604
  Receipt Date: 20210604
  Transmission Date: 20210717
  Serious: Yes (Hospitalization)
  Sender: FDA-Public Use
  Company Number: ES-TEVA-2021-ES-1917341

PATIENT
  Age: 58 Year
  Sex: Female

DRUGS (2)
  1. ENALAPRIL [Suspect]
     Active Substance: ENALAPRIL
     Route: 048
     Dates: start: 2019, end: 20191030
  2. HIGROTONA 50 MG COMPRIMIDOS , 30 COMPRIMIDOS [Suspect]
     Active Substance: CHLORTHALIDONE
     Route: 048
     Dates: start: 2019, end: 20191030

REACTIONS (1)
  - Hyponatraemia [Recovered/Resolved]

NARRATIVE: CASE EVENT DATE: 20191030
